FAERS Safety Report 23523863 (Version 8)
Quarter: 2025Q1

REPORT INFORMATION
  Report Type: Spontaneous
  Country: US (occurrence: US)
  Receive Date: 20240214
  Receipt Date: 20250213
  Transmission Date: 20250408
  Serious: Yes (Other)
  Sender: PFIZER
  Company Number: US-PFIZER INC-PV202400020914

PATIENT
  Age: 66 Year
  Sex: Female

DRUGS (3)
  1. IBRANCE [Suspect]
     Active Substance: PALBOCICLIB
  2. IBRANCE [Suspect]
     Active Substance: PALBOCICLIB
  3. IBRANCE [Suspect]
     Active Substance: PALBOCICLIB

REACTIONS (9)
  - Colitis ulcerative [Unknown]
  - Product dose omission issue [Unknown]
  - Anaemia [Recovering/Resolving]
  - Fatigue [Unknown]
  - Blood creatinine increased [Unknown]
  - Constipation [Unknown]
  - Pain [Unknown]
  - Full blood count decreased [Unknown]
  - Alopecia [Unknown]
